FAERS Safety Report 4413867-8 (Version None)
Quarter: 2004Q3

REPORT INFORMATION
  Report Type: 
  Country: None (occurrence: None)
  Receive Date: 20040802
  Receipt Date: 20040802
  Transmission Date: 20050211
  Serious: Yes (Hospitalization)
  Sender: FDA-Public Use
  Company Number: None

PATIENT
  Age: 67 Year
  Sex: Male
  Weight: 111.7 kg

DRUGS (8)
  1. INTEGRILIN [Suspect]
     Indication: ANTIPLATELET THERAPY
     Dosage: 2(102 ML BOLUSES),18 ML/HR IV
     Route: 042
     Dates: start: 20040726, end: 20040727
  2. FENTANYL [Concomitant]
  3. MIDAZOLAM [Concomitant]
  4. MORPHINE [Concomitant]
  5. ATENOLOL [Concomitant]
  6. CLOPIDOGREL [Concomitant]
  7. ASPIRIN [Concomitant]
  8. PEPCID [Concomitant]

REACTIONS (1)
  - WOUND SECRETION [None]
